FAERS Safety Report 5476429-X (Version None)
Quarter: 2007Q4

REPORT INFORMATION
  Report Type: 
  Country: None (occurrence: None)
  Receive Date: 20071003
  Receipt Date: 20070926
  Transmission Date: 20080405
  Serious: Yes (Other)
  Sender: FDA-Public Use
  Company Number: GB-PFIZER INC-2007081090

PATIENT
  Age: 21 Year
  Sex: Female

DRUGS (1)
  1. VARENICLINE TABLETS [Suspect]
     Route: 048
     Dates: start: 20070620, end: 20070718

REACTIONS (3)
  - AGITATION [None]
  - MOOD ALTERED [None]
  - SUICIDAL IDEATION [None]
